FAERS Safety Report 8154662-6 (Version None)
Quarter: 2012Q1

REPORT INFORMATION
  Report Type: 
  Country: None (occurrence: None)
  Receive Date: 20120221
  Receipt Date: 20120214
  Transmission Date: 20120608
  Serious: Yes (Hospitalization)
  Sender: FDA-Public Use
  Company Number: CA-B.I. PHARMACEUTICALS,INC./RIDGEFIELD-2012-CN-00346CN

PATIENT
  Age: 88 Year
  Sex: Male
  Weight: 63.5 kg

DRUGS (13)
  1. PRADAXA [Suspect]
     Dosage: 300 MG
     Route: 048
  2. ANDROCUR [Concomitant]
     Route: 065
  3. METOPROLOL TARTRATE [Concomitant]
     Route: 065
  4. SYMBICORT [Concomitant]
     Route: 065
  5. NOVO-SPIROTON [Concomitant]
     Route: 065
  6. ACTONEL [Concomitant]
     Route: 065
  7. LIPITOR [Concomitant]
     Route: 065
  8. PANTOPRAZOLE SODIUM [Concomitant]
     Route: 065
  9. COLCHICINE [Concomitant]
     Route: 065
  10. MICARDIS [Concomitant]
     Route: 065
  11. CORTIFOAM [Concomitant]
     Route: 065
  12. HYDROCHLOROTHIAZIDE [Concomitant]
     Route: 065
  13. VENTOLIN [Concomitant]
     Route: 065

REACTIONS (3)
  - HAEMOGLOBIN DECREASED [None]
  - INTERNATIONAL NORMALISED RATIO INCREASED [None]
  - RECTAL HAEMORRHAGE [None]
